FAERS Safety Report 8344223-8 (Version None)
Quarter: 2012Q2

REPORT INFORMATION
  Report Type: 
  Country: None (occurrence: None)
  Receive Date: 20120508
  Receipt Date: 20080714
  Transmission Date: 20120825
  Serious: No
  Sender: FDA-Public Use
  Company Number: US-TEVA-US024100

PATIENT
  Sex: Male
  Weight: 106 kg

DRUGS (11)
  1. TREANDA [Suspect]
     Indication: CHRONIC LYMPHOCYTIC LEUKAEMIA
     Dosage: 200 MILLIGRAM; DAY ONE AND TWO OF 28 DAY CYCLE
     Route: 042
     Dates: start: 20080527, end: 20080528
  2. PACERONE [Concomitant]
     Route: 048
  3. ALTACE [Concomitant]
     Dosage: 2.5 MILLIGRAM;
     Route: 048
  4. TREANDA [Suspect]
     Dosage: 200 MILLIGRAM; DAY ONE AND TWO OF CYCLE TWO
     Route: 042
     Dates: start: 20080624, end: 20080625
  5. LASIX [Concomitant]
     Dosage: 40 MILLIGRAM;
     Route: 048
  6. ZYRTEC [Concomitant]
     Indication: HYPERSENSITIVITY
     Route: 065
  7. DEXAMETHASONE [Concomitant]
     Indication: PREMEDICATION
     Dosage: PREMEDICATION
     Route: 042
     Dates: start: 20080527
  8. COUMADIN [Concomitant]
     Dosage: 2 MILLIGRAM;
     Route: 048
  9. ALOXI [Concomitant]
     Indication: PREMEDICATION
     Dosage: PREMEDICATION
     Route: 042
     Dates: start: 20080527
  10. PROZAC [Concomitant]
     Route: 065
  11. FLOMAX [Concomitant]
     Route: 048

REACTIONS (2)
  - WHITE BLOOD CELL COUNT DECREASED [None]
  - PLATELET COUNT DECREASED [None]
